FAERS Safety Report 4354278-3 (Version None)
Quarter: 2004Q2

REPORT INFORMATION
  Report Type: 
  Country: None (occurrence: None)
  Receive Date: 20040504
  Receipt Date: 20040115
  Transmission Date: 20050107
  Serious: Yes (Death)
  Sender: FDA-Public Use
  Company Number: US-JNJFOC-20031006760

PATIENT
  Age: 80 Year
  Sex: Male

DRUGS (1)
  1. VIADUR [Suspect]
     Indication: PROSTATE CANCER
     Dosage: 120 UG, 1 IN 1 DAY, SUBCUTANEOUS
     Route: 058
     Dates: start: 20030224, end: 20030527

REACTIONS (1)
  - NEOPLASM MALIGNANT [None]
